FAERS Safety Report 18548896 (Version 1)
Quarter: 2020Q4

REPORT INFORMATION
  Report Type: Spontaneous
  Country: ES (occurrence: ES)
  Receive Date: 20201125
  Receipt Date: 20201125
  Transmission Date: 20210114
  Serious: Yes (Hospitalization, Other)
  Sender: FDA-Public Use
  Company Number: ES-BAXTER-2020BAX023640

PATIENT
  Age: 13 Year
  Sex: Male

DRUGS (7)
  1. SULFAMETHOXAZOLE W/TRIMETHOPRIM [Suspect]
     Active Substance: SULFAMETHOXAZOLE\TRIMETHOPRIM
     Indication: PRODUCT USED FOR UNKNOWN INDICATION
     Route: 065
  2. DACTINOMYCIN [Suspect]
     Active Substance: DACTINOMYCIN
     Indication: OSTEOSARCOMA
     Dosage: CYCLICAL
     Route: 065
  3. METHOTREXATE. [Suspect]
     Active Substance: METHOTREXATE
     Indication: OSTEOSARCOMA
     Dosage: HIGH INITIAL DOSE; CYCLICAL
     Route: 065
  4. CISPLATIN. [Suspect]
     Active Substance: CISPLATIN
     Indication: OSTEOSARCOMA
     Dosage: CYCLICAL
     Route: 065
  5. DOXIL [Suspect]
     Active Substance: DOXORUBICIN HYDROCHLORIDE
     Indication: OSTEOSARCOMA
     Dosage: CYCLICAL
     Route: 065
  6. GENOXAL [Suspect]
     Active Substance: CYCLOPHOSPHAMIDE
     Indication: OSTEOSARCOMA
     Dosage: CYCLICAL
     Route: 065
  7. VINCRISTINE [Suspect]
     Active Substance: VINCRISTINE
     Indication: OSTEOSARCOMA
     Dosage: CYCLICAL
     Route: 065

REACTIONS (5)
  - Epidermal necrosis [Recovered/Resolved]
  - Myelosuppression [Recovered/Resolved]
  - Leukopenia [Recovered/Resolved]
  - Toxicity to various agents [Recovered/Resolved]
  - Thrombocytopenia [Recovered/Resolved]
